FAERS Safety Report 9780046 (Version 1)
Quarter: 2013Q4

REPORT INFORMATION
  Report Type: Spontaneous
  Country: DE (occurrence: DE)
  Receive Date: 20131223
  Receipt Date: 20131223
  Transmission Date: 20140711
  Serious: Yes (Hospitalization)
  Sender: FDA-Public Use
  Company Number: DE-PFIZER INC-2013362906

PATIENT
  Age: 55 Year
  Sex: Female

DRUGS (2)
  1. DEXAMETHASONE SODIUM PHOSPHATE [Suspect]
     Indication: HYPOPHYSITIS
     Dosage: 4X4 MG
     Dates: start: 20110920
  2. DEXAMETHASONE SODIUM PHOSPHATE [Suspect]
     Dosage: 2X1 MG (4 WEEKS AFTER ONSET)
     Dates: start: 201110

REACTIONS (2)
  - Adrenocortical insufficiency acute [Unknown]
  - Hyperglycaemia [Unknown]
